FAERS Safety Report 10714612 (Version 3)
Quarter: 2015Q1

REPORT INFORMATION
  Report Type: Spontaneous
  Country: DE (occurrence: DE)
  Receive Date: 20150115
  Receipt Date: 20150220
  Transmission Date: 20150721
  Serious: Yes (Hospitalization)
  Sender: FDA-Public Use
  Company Number: DE-TEVA-533711GER

PATIENT
  Sex: Female

DRUGS (10)
  1. MCP [Suspect]
     Active Substance: METOCLOPRAMIDE HYDROCHLORIDE
     Indication: NAUSEA
     Route: 048
     Dates: start: 20130214, end: 20130224
  2. NOVAMINSULFON 500 (TABLETTEN) LICHTENSTEIN [Suspect]
     Active Substance: METAMIZOLE SODIUM
     Route: 048
     Dates: start: 20130205, end: 20130224
  3. XARELTO [Suspect]
     Active Substance: RIVAROXABAN
     Indication: ARTHROSCOPY
     Dosage: 1 DF
     Route: 065
     Dates: start: 20130206, end: 20130214
  4. PANTOPRAZOLE [Suspect]
     Active Substance: PANTOPRAZOLE SODIUM
     Dosage: 1 DOSAGE FORMS DAILY; 0-0-1
     Route: 065
     Dates: start: 20130205, end: 20130224
  5. VOLTAREN RESINAT [Suspect]
     Active Substance: DICLOFENAC
     Indication: PAIN
  6. LYRICA 50MG [Concomitant]
     Indication: ANXIETY DISORDER
     Dosage: 1 DOSAGE FORMS DAILY; 1 DF IN THE EVENING
     Dates: start: 201204, end: 20130224
  7. NOVALGIN [Suspect]
     Active Substance: METAMIZOLE SODIUM
     Route: 065
  8. VOLTAREN RESINAT [Suspect]
     Active Substance: DICLOFENAC
     Indication: ARTHROSCOPY
     Dosage: 3 DOSAGE FORMS DAILY; 1-1-1
     Route: 065
     Dates: start: 20130205, end: 20130224
  9. VOLTAREN RESINAT [Suspect]
     Active Substance: DICLOFENAC
     Indication: INFLAMMATION
  10. BROMELAIN [Suspect]
     Active Substance: BROMELAINS
     Indication: ARTHROSCOPY
     Dosage: 1 DOSAGE FORMS DAILY; 0-0-1
     Route: 065
     Dates: start: 20130206, end: 20130224

REACTIONS (7)
  - Cholecystitis [Unknown]
  - Respiratory failure [Unknown]
  - Acute hepatic failure [Recovering/Resolving]
  - Drug-induced liver injury [Recovering/Resolving]
  - Sepsis [Unknown]
  - Pancreatitis [Recovering/Resolving]
  - Coma [None]

NARRATIVE: CASE EVENT DATE: 2013
